FAERS Safety Report 25634448 (Version 1)
Quarter: 2025Q3

REPORT INFORMATION
  Report Type: Spontaneous
  Country: US (occurrence: US)
  Receive Date: 20250801
  Receipt Date: 20250801
  Transmission Date: 20251021
  Serious: Yes (Other)
  Sender: INSUD PHARMA
  Company Number: US-INSUD PHARMA-2507US06188

PATIENT

DRUGS (1)
  1. TESTOSTERONE CYPIONATE [Suspect]
     Active Substance: TESTOSTERONE CYPIONATE
     Indication: Product used for unknown indication
     Dosage: 1 MILLILITER, WEEKLY
     Route: 030

REACTIONS (7)
  - Withdrawal syndrome [Unknown]
  - Narcolepsy [Unknown]
  - Loss of consciousness [Unknown]
  - Fatigue [Unknown]
  - Product dose omission issue [Unknown]
  - Poor quality product administered [Unknown]
  - Product packaging quantity issue [Unknown]

NARRATIVE: CASE EVENT DATE: 20250601
